FAERS Safety Report 24009503 (Version 1)
Quarter: 2024Q2

REPORT INFORMATION
  Report Type: Spontaneous
  Country: US (occurrence: None)
  Receive Date: 20240625
  Receipt Date: 20240625
  Transmission Date: 20240716
  Serious: Yes (Other)
  Sender: FDA-Public Use
  Company Number: 2024A140910

PATIENT
  Sex: Female

DRUGS (1)
  1. LYNPARZA [Suspect]
     Active Substance: OLAPARIB
     Route: 048

REACTIONS (12)
  - Toxicity to various agents [Unknown]
  - Carbohydrate antigen 125 increased [Unknown]
  - Malignant peritoneal neoplasm [Unknown]
  - Ovarian cancer [Unknown]
  - Thyroid cancer [Unknown]
  - Colon cancer [Unknown]
  - Diarrhoea [Unknown]
  - Insomnia [Unknown]
  - Rhinorrhoea [Unknown]
  - Lymphoedema [Unknown]
  - Lethargy [Unknown]
  - Quality of life decreased [Unknown]
